FAERS Safety Report 6481406-6 (Version None)
Quarter: 2009Q4

REPORT INFORMATION
  Report Type: 
  Country: None (occurrence: None)
  Receive Date: 20091208
  Receipt Date: 20090315
  Transmission Date: 20100525
  Serious: No
  Sender: FDA-Public Use
  Company Number: US-AMGEN-KDL338579

PATIENT
  Sex: Female
  Weight: 63.6 kg

DRUGS (1)
  1. ENBREL [Suspect]
     Indication: PSORIASIS
     Route: 058
     Dates: start: 20090217

REACTIONS (4)
  - DIARRHOEA [None]
  - NAUSEA [None]
  - VIRAL INFECTION [None]
  - VOMITING [None]
